FAERS Safety Report 9289362 (Version 2)
Quarter: 2013Q3

REPORT INFORMATION
  Report Type: Spontaneous
  Country: US (occurrence: US)
  Receive Date: 20130514
  Receipt Date: 20130704
  Transmission Date: 20140515
  Serious: Yes (Other)
  Sender: FDA-Public Use
  Company Number: CHPA2013US008142

PATIENT
  Age: 75 Year
  Sex: Female

DRUGS (3)
  1. THERAPEUTIC MINERAL ICE [Suspect]
     Indication: CARTILAGE INJURY
     Dosage: UNK, QD PRN
     Route: 061
  2. THERAPEUTIC MINERAL ICE [Suspect]
     Indication: ARTHRITIS
  3. COUMADIN//WARFARIN SODIUM [Concomitant]
     Indication: ANTICOAGULANT THERAPY
     Dosage: UNK, UNK

REACTIONS (8)
  - Fall [Recovering/Resolving]
  - Tooth loss [Recovering/Resolving]
  - Facial bones fracture [Recovering/Resolving]
  - Cartilage injury [Recovering/Resolving]
  - Blood glucose decreased [Unknown]
  - Arthritis [Not Recovered/Not Resolved]
  - Therapeutic response unexpected [Unknown]
  - Off label use [Unknown]
